FAERS Safety Report 23915665 (Version 1)
Quarter: 2024Q2

REPORT INFORMATION
  Report Type: Spontaneous
  Country: US (occurrence: None)
  Receive Date: 20240528
  Receipt Date: 20240528
  Transmission Date: 20240716
  Serious: Yes (Other)
  Sender: FDA-Public Use
  Company Number: None

PATIENT
  Age: 63 Year
  Sex: Female
  Weight: 96.75 kg

DRUGS (6)
  1. COSMETICS [Suspect]
     Active Substance: COSMETICS
     Indication: Dry skin prophylaxis
     Dosage: OTHER FREQUENCY : NO INSTRUCTIONS;?
     Route: 061
     Dates: start: 20240520, end: 20240520
  2. INNISFREE DAILY UV DEFENSE SUNSCREEN [Suspect]
     Active Substance: AVOBENZONE\HOMOSALATE\OCTISALATE
  3. GABAPENTIN [Concomitant]
  4. PREGABALIN [Concomitant]
  5. pantopropazole [Concomitant]
  6. hydroxychoroquine [Concomitant]

REACTIONS (4)
  - Product use complaint [None]
  - Product administration error [None]
  - Ocular icterus [None]
  - Ocular hyperaemia [None]

NARRATIVE: CASE EVENT DATE: 20240520
